FAERS Safety Report 21532678 (Version 3)
Quarter: 2024Q1

REPORT INFORMATION
  Report Type: Report from Study
  Country: US (occurrence: US)
  Receive Date: 20221101
  Receipt Date: 20240330
  Transmission Date: 20240409
  Serious: No
  Sender: FDA-Public Use
  Company Number: US-ABBVIE-22K-163-4437492-00

PATIENT
  Sex: Female

DRUGS (4)
  1. RINVOQ [Suspect]
     Active Substance: UPADACITINIB
     Indication: Rheumatoid arthritis
     Dosage: EXTENDED RELEASE?FORM STRENGTH: 15MG
     Route: 048
     Dates: start: 202111
  2. RINVOQ [Suspect]
     Active Substance: UPADACITINIB
     Indication: Rheumatoid arthritis
     Dosage: EXTENDED RELEASE?FORM STRENGTH: 15MG
     Route: 048
  3. ASPIRIN [Concomitant]
     Active Substance: ASPIRIN
     Indication: Product used for unknown indication
  4. METOPROLOL [Concomitant]
     Active Substance: METOPROLOL
     Indication: Product used for unknown indication

REACTIONS (11)
  - Dyspnoea [Not Recovered/Not Resolved]
  - Inflammation [Not Recovered/Not Resolved]
  - Palpitations [Unknown]
  - Hypoaesthesia [Not Recovered/Not Resolved]
  - Atrial fibrillation [Unknown]
  - Influenza like illness [Recovered/Resolved]
  - Atrial fibrillation [Not Recovered/Not Resolved]
  - Chest pain [Not Recovered/Not Resolved]
  - Heart rate irregular [Not Recovered/Not Resolved]
  - Pain in extremity [Not Recovered/Not Resolved]
  - Neuropathy peripheral [Unknown]

NARRATIVE: CASE EVENT DATE: 20220101
